FAERS Safety Report 8839402 (Version 1)
Quarter: 2012Q4

REPORT INFORMATION
  Report Type: 
  Country: US (occurrence: US)
  Receive Date: 20121015
  Receipt Date: 20121015
  Transmission Date: 20130627
  Serious: Yes (Hospitalization)
  Sender: FDA-Public Use
  Company Number: US-BAYER-2012-105214

PATIENT
  Age: 48 Year
  Sex: Female

DRUGS (5)
  1. YAZ [Suspect]
     Indication: MENSTRUAL CYCLE MANAGEMENT
  2. COLACE [Concomitant]
     Dosage: 100 mg, PRN, daily
  3. CIPRO [Concomitant]
     Dosage: 500 mg, BID, 5 days
  4. DONNATAL [Concomitant]
     Dosage: UNK UNK, PRN
  5. PERCOCET [Concomitant]

REACTIONS (1)
  - Portal vein thrombosis [None]
